FAERS Safety Report 9258914 (Version 1)
Quarter: 2013Q2

REPORT INFORMATION
  Report Type: Spontaneous
  Country: US (occurrence: US)
  Receive Date: 20130426
  Receipt Date: 20130426
  Transmission Date: 20140414
  Serious: Yes (Hospitalization)
  Sender: FDA-Public Use
  Company Number: US-009507513-1304USA015745

PATIENT
  Sex: Male

DRUGS (2)
  1. SAPHRIS [Suspect]
     Route: 060
  2. HALDOL [Concomitant]

REACTIONS (2)
  - Chest pain [Unknown]
  - Drug dispensing error [Unknown]
